FAERS Safety Report 9725808 (Version 2)
Quarter: 2013Q4

REPORT INFORMATION
  Report Type: Spontaneous
  Country: US (occurrence: US)
  Receive Date: 20131203
  Receipt Date: 20131203
  Transmission Date: 20140711
  Serious: Yes (Hospitalization)
  Sender: FDA-Public Use
  Company Number: US-UCBSA-098119

PATIENT
  Age: 19 Year
  Sex: Male
  Weight: 49.8 kg

DRUGS (10)
  1. CIMZIA [Suspect]
     Indication: CROHN^S DISEASE
     Dosage: 102284. EXP DATE. ??/DEC/2015
     Dates: start: 20130711, end: 2013
  2. IMURAN [Concomitant]
  3. AZATHIOPRINE [Concomitant]
  4. DIPHENHYDRAMINE [Concomitant]
     Dosage: 25 MG ONCE DAILY
  5. DURAGESIC [Concomitant]
  6. IRON [Concomitant]
     Dosage: BEFORE MEALS
  7. FOLIC ACID [Concomitant]
  8. LORAZEPAM [Concomitant]
     Indication: ANXIETY
     Dosage: 0.5 MG. 1 TAB. EVERY 6 HOURS.
  9. MULTIVITAMIN [Concomitant]
  10. PREDNISONE [Concomitant]

REACTIONS (3)
  - Crohn^s disease [Recovering/Resolving]
  - Infection [Unknown]
  - Pyrexia [Not Recovered/Not Resolved]
